FAERS Safety Report 8634246 (Version 2)
Quarter: 2013Q1

REPORT INFORMATION
  Report Type: Spontaneous
  Country: BR (occurrence: BR)
  Receive Date: 20120626
  Receipt Date: 20130316
  Transmission Date: 20140127
  Serious: Yes (Other)
  Sender: FDA-Public Use
  Company Number: BR-US-EMD SERONO, INC.-7136627

PATIENT
  Sex: Male

DRUGS (4)
  1. REBIF [Suspect]
     Indication: RELAPSING-REMITTING MULTIPLE SCLEROSIS
     Dates: start: 20050715, end: 20130308
  2. PARACETAMOL [Concomitant]
     Indication: PRODUCT USED FOR UNKNOWN INDICATION
  3. DIPIRONE (DIPYRONE) [Concomitant]
     Indication: PRODUCT USED FOR UNKNOWN INDICATION
  4. UNSPECIFIED MEDICATION [Concomitant]
     Indication: MIGRAINE

REACTIONS (3)
  - Optic nerve cupping [Recovering/Resolving]
  - Eye pain [Recovering/Resolving]
  - Headache [Recovering/Resolving]
